FAERS Safety Report 4491746-8 (Version None)
Quarter: 2004Q4

REPORT INFORMATION
  Report Type: 
  Country: None (occurrence: None)
  Receive Date: 20041103
  Receipt Date: 20041028
  Transmission Date: 20050328
  Serious: Yes (Hospitalization)
  Sender: FDA-Public Use
  Company Number: US-MERCK-0410USA04281

PATIENT
  Sex: Male

DRUGS (1)
  1. VIOXX [Suspect]
     Route: 048
     Dates: start: 20010101

REACTIONS (5)
  - CARDIAC DISORDER [None]
  - COLONIC POLYP [None]
  - DUODENAL ULCER HAEMORRHAGE [None]
  - EATING DISORDER [None]
  - NAUSEA [None]
